FAERS Safety Report 14969401 (Version 1)
Quarter: 2018Q2

REPORT INFORMATION
  Report Type: Report from Study
  Country: US (occurrence: US)
  Receive Date: 20180604
  Receipt Date: 20180604
  Transmission Date: 20180711
  Serious: Yes (Other)
  Sender: FDA-Public Use
  Company Number: US-SHIRE-US201820554

PATIENT
  Age: 47 Year
  Sex: Male

DRUGS (1)
  1. GATTEX [Suspect]
     Active Substance: TEDUGLUTIDE\WATER
     Indication: PRODUCT USED FOR UNKNOWN INDICATION
     Dosage: 4.1 MG, 1X/DAY:QD
     Route: 065

REACTIONS (3)
  - Constipation [Unknown]
  - Liver disorder [Unknown]
  - Hepatic encephalopathy [Unknown]
